FAERS Safety Report 9511009 (Version 1)
Quarter: 2013Q1

REPORT INFORMATION
  Report Type: Spontaneous
  Country: US (occurrence: None)
  Receive Date: 20130305
  Receipt Date: 20130305
  Transmission Date: 20140127
  Serious: Yes (Hospitalization)
  Sender: FDA-Public Use
  Company Number: 163-21880-11112482

PATIENT
  Age: 85 Year
  Sex: Male
  Weight: 67.95 kg

DRUGS (4)
  1. REVLIMID [Suspect]
     Indication: PLASMA CELL MYELOMA
     Dosage: 10 MG, ONCE DAILY FOR 21 OF 28 DAYS, PO
     Route: 048
     Dates: start: 201111, end: 20111130
  2. DECADRON (DEXAMETHASONE) [Concomitant]
  3. HYDRATION (INTRAVENOUS RINGERS) [Concomitant]
  4. ZOFRAN (ONDANSETRON HYDROCHLORIDE) [Concomitant]

REACTIONS (3)
  - Full blood count abnormal [None]
  - Tremor [None]
  - Asthenia [None]
